FAERS Safety Report 11154917 (Version 1)
Quarter: 2015Q2

REPORT INFORMATION
  Report Type: Spontaneous
  Country: US (occurrence: US)
  Receive Date: 20150602
  Receipt Date: 20150602
  Transmission Date: 20150821
  Serious: Yes (Other)
  Sender: FDA-Public Use
  Company Number: US-JNJFOC-20150500034

PATIENT
  Age: 64 Year
  Sex: Male

DRUGS (11)
  1. VITAMIN B12 [Concomitant]
     Active Substance: CYANOCOBALAMIN
  2. ZOLPIDEM [Concomitant]
     Active Substance: ZOLPIDEM\ZOLPIDEM TARTRATE
  3. IMBRUVICA [Suspect]
     Active Substance: IBRUTINIB
     Indication: MANTLE CELL LYMPHOMA
     Route: 048
     Dates: start: 20150422
  4. ACYCLOVIR. [Concomitant]
     Active Substance: ACYCLOVIR
  5. OXYCODONE [Concomitant]
     Active Substance: OXYCODONE
  6. DOCUSATE SODIUM. [Concomitant]
     Active Substance: DOCUSATE SODIUM
  7. CENTRUM NOS [Concomitant]
  8. LORATADINE. [Concomitant]
     Active Substance: LORATADINE
  9. ZOFRAN [Concomitant]
     Active Substance: ONDANSETRON HYDROCHLORIDE
  10. VITAMIN D3 [Concomitant]
     Active Substance: CHOLECALCIFEROL
  11. ROPINIROLE. [Concomitant]
     Active Substance: ROPINIROLE

REACTIONS (11)
  - Tinnitus [Not Recovered/Not Resolved]
  - Neuropathy peripheral [Unknown]
  - Haemoglobin decreased [Recovering/Resolving]
  - Cough [Unknown]
  - Anaemia [Unknown]
  - Platelet count decreased [Unknown]
  - Diarrhoea [Unknown]
  - Myalgia [Unknown]
  - Pain in extremity [Unknown]
  - Contusion [Unknown]
  - White blood cell count decreased [Unknown]

NARRATIVE: CASE EVENT DATE: 2015
